FAERS Safety Report 17308294 (Version 1)
Quarter: 2020Q1

REPORT INFORMATION
  Report Type: Spontaneous
  Country: US (occurrence: US)
  Receive Date: 20200123
  Receipt Date: 20200123
  Transmission Date: 20200409
  Serious: Yes (Other)
  Sender: FDA-Public Use
  Company Number: None

PATIENT
  Age: 35 Year
  Sex: Male
  Weight: 76.5 kg

DRUGS (2)
  1. OXYCODONE 10MG TABLET [Suspect]
     Active Substance: OXYCODONE HYDROCHLORIDE
     Indication: PAIN
     Dosage: ?          QUANTITY:168 TABLET(S);?
     Route: 048
  2. OXYCODONE 10MG TABLET [Suspect]
     Active Substance: OXYCODONE HYDROCHLORIDE
     Indication: SURGERY
     Dosage: ?          QUANTITY:168 TABLET(S);?
     Route: 048

REACTIONS (7)
  - Product substitution issue [None]
  - Headache [None]
  - Depression [None]
  - Abdominal pain upper [None]
  - Oropharyngeal pain [None]
  - Inadequate analgesia [None]
  - Drug withdrawal syndrome [None]

NARRATIVE: CASE EVENT DATE: 20200115
